FAERS Safety Report 21411135 (Version 1)
Quarter: 2022Q4

REPORT INFORMATION
  Report Type: Spontaneous
  Country: US (occurrence: US)
  Receive Date: 20221005
  Receipt Date: 20221005
  Transmission Date: 20230113
  Serious: Yes (Death, Hospitalization, Other)
  Sender: FDA-Public Use
  Company Number: US-CELLTRION INC.-2022US015903

PATIENT

DRUGS (3)
  1. RITUXIMAB [Suspect]
     Active Substance: RITUXIMAB
     Indication: Mantle cell lymphoma stage IV
     Dosage: FINISHED SIX CYCLES OF RTX + BENDAMUSTINE, AND THE LAST ONE WAS THREE WEEKS PRIOR TO THE PRESENTATIO
  2. BENDAMUSTINE [Suspect]
     Active Substance: BENDAMUSTINE
     Indication: Mantle cell lymphoma stage IV
     Dosage: FINISHED SIX CYCLES OF RTX + BENDAMUSTINE, AND THE LAST ONE WAS THREE WEEKS PRIOR TO THE PRESENTATIO
  3. BENDAMUSTINE [Suspect]
     Active Substance: BENDAMUSTINE
     Indication: Chemotherapy

REACTIONS (13)
  - Death [Fatal]
  - Respiratory distress [Unknown]
  - Interstitial lung disease [Unknown]
  - Pneumonia bacterial [Not Recovered/Not Resolved]
  - Stenotrophomonas infection [Not Recovered/Not Resolved]
  - Acute myocardial infarction [Unknown]
  - Atrial fibrillation [Unknown]
  - Acute respiratory failure [Unknown]
  - Chest pain [Unknown]
  - Dyspnoea [Unknown]
  - Cough [Unknown]
  - Therapeutic product ineffective [Unknown]
  - Off label use [Unknown]
